FAERS Safety Report 17052673 (Version 2)
Quarter: 2020Q1

REPORT INFORMATION
  Report Type: Other
  Country: CA (occurrence: CA)
  Receive Date: 20191120
  Receipt Date: 20200205
  Transmission Date: 20200409
  Serious: Yes (Other)
  Sender: FDA-Public Use
  Company Number: CA-PFIZER INC-2019498486

PATIENT
  Age: 4 Day
  Weight: 3 kg

DRUGS (1)
  1. MORPHINE SULFATE. [Suspect]
     Active Substance: MORPHINE SULFATE
     Indication: PAIN MANAGEMENT
     Dosage: UNK
     Route: 041

REACTIONS (4)
  - Stupor [Unknown]
  - Incorrect dose administered [Unknown]
  - Product prescribing error [Unknown]
  - Neonatal respiratory depression [Unknown]
